FAERS Safety Report 17472645 (Version 1)
Quarter: 2020Q1

REPORT INFORMATION
  Report Type: Spontaneous
  Country: EG (occurrence: EG)
  Receive Date: 20200228
  Receipt Date: 20200228
  Transmission Date: 20200409
  Serious: Yes (Other)
  Sender: FDA-Public Use
  Company Number: EG-HIKMA PHARMACEUTICALS USA INC.-EG-H14001-20-00986

PATIENT
  Age: 12 Year
  Sex: Male
  Weight: 37 kg

DRUGS (1)
  1. UNITREXATE [Suspect]
     Active Substance: METHOTREXATE
     Indication: SUPPORTIVE CARE
     Route: 030

REACTIONS (1)
  - Injection site pain [Unknown]
